FAERS Safety Report 5535124-9 (Version None)
Quarter: 2007Q4

REPORT INFORMATION
  Report Type: 
  Country: None (occurrence: None)
  Receive Date: 20071203
  Receipt Date: 20071119
  Transmission Date: 20080405
  Serious: Yes (Death)
  Sender: FDA-Public Use
  Company Number: TCI2007A06231

PATIENT
  Age: 81 Year
  Sex: Female

DRUGS (7)
  1. TAKEPRON QD TABLETS9LANSOPRAZOLE) [Suspect]
     Indication: REFLUX OESOPHAGITIS
     Dosage: 15 MG (15 MG, 1 IN 1 D) PER ORAL
     Route: 048
     Dates: start: 20071012, end: 20071112
  2. HISRACK (ETODOLAC) (TABLETS) [Suspect]
     Indication: FRACTURE
     Dosage: 400 MG (200 MG, 2 IN 1 D) PER ORAL
     Route: 048
     Dates: start: 20071012
  3. HISRACK (ETODOLAC) (TABLETS) [Suspect]
     Indication: PAIN
     Dosage: 400 MG (200 MG, 2 IN 1 D) PER ORAL
     Route: 048
     Dates: start: 20071012
  4. WARFARIN SODIUM [Concomitant]
  5. SELEBEX (TEPRENONE) (PREPARATION FOR ORAL USE NOS) [Concomitant]
  6. SENEVACUL (SENNOSIDE A+B) (TABLETS) [Concomitant]
  7. LENDORMIN (BROTIZOLAM)  (TABLETS) [Concomitant]

REACTIONS (3)
  - AGRANULOCYTOSIS [None]
  - SEPSIS [None]
  - UPPER RESPIRATORY TRACT INFLAMMATION [None]
